FAERS Safety Report 11361097 (Version 3)
Quarter: 2015Q3

REPORT INFORMATION
  Report Type: Report from Study
  Country: US (occurrence: US)
  Receive Date: 20150810
  Receipt Date: 20150925
  Transmission Date: 20151125
  Serious: No
  Sender: FDA-Public Use
  Company Number: US-AMGEN-USASP2015078357

PATIENT
  Age: 48 Year
  Sex: Female

DRUGS (1)
  1. ENBREL [Suspect]
     Active Substance: ETANERCEPT
     Indication: PSORIASIS
     Dosage: 50 MG, 2 TIMES/WK
     Route: 065
     Dates: start: 20150721

REACTIONS (13)
  - Pruritus [Not Recovered/Not Resolved]
  - Injection site reaction [Recovered/Resolved]
  - Alopecia [Not Recovered/Not Resolved]
  - Injection site pain [Unknown]
  - Injection site irritation [Recovered/Resolved]
  - Injection site haemorrhage [Recovered/Resolved]
  - Oropharyngeal pain [Unknown]
  - Rhinalgia [Unknown]
  - Nervousness [Not Recovered/Not Resolved]
  - Skin ulcer [Unknown]
  - Skin warm [Unknown]
  - Rash pruritic [Unknown]
  - Injection site erythema [Recovered/Resolved]

NARRATIVE: CASE EVENT DATE: 2015
